FAERS Safety Report 6072164-8 (Version None)
Quarter: 2009Q1

REPORT INFORMATION
  Report Type: 
  Country: None (occurrence: None)
  Receive Date: 20090210
  Receipt Date: 20090205
  Transmission Date: 20090719
  Serious: Yes (Other)
  Sender: FDA-Public Use
  Company Number: B0556477A

PATIENT
  Age: 12 Year
  Sex: Male

DRUGS (1)
  1. RELENZA [Suspect]
     Indication: INFLUENZA
     Dosage: 10MG TWICE PER DAY
     Route: 055
     Dates: start: 20090124, end: 20090126

REACTIONS (6)
  - ADVERSE DRUG REACTION [None]
  - AGITATION [None]
  - HALLUCINATION [None]
  - NAUSEA [None]
  - RESTLESSNESS [None]
  - VOMITING [None]
